FAERS Safety Report 8866158 (Version 4)
Quarter: 2013Q1

REPORT INFORMATION
  Report Type: Report from Study
  Country: MX (occurrence: MX)
  Receive Date: 20121025
  Receipt Date: 20130215
  Transmission Date: 20140127
  Serious: Yes (Hospitalization)
  Sender: FDA-Public Use
  Company Number: MX-AMGEN-MEXCT2012068085

PATIENT
  Age: 24 Year
  Sex: Female

DRUGS (1)
  1. ROMIPLOSTIM [Suspect]
     Indication: IDIOPATHIC THROMBOCYTOPENIC PURPURA
     Dosage: 10 MUG/KG, QWK
     Route: 058
     Dates: start: 20101102

REACTIONS (1)
  - Gastrointestinal haemorrhage [Recovered/Resolved]
